FAERS Safety Report 9437248 (Version 1)
Quarter: 2013Q3

REPORT INFORMATION
  Report Type: Report from Study
  Country: AR (occurrence: AR)
  Receive Date: 20130802
  Receipt Date: 20130802
  Transmission Date: 20140515
  Serious: Yes (Hospitalization)
  Sender: FDA-Public Use
  Company Number: PHHY2013AR082343

PATIENT
  Sex: Female

DRUGS (2)
  1. DIOVAN [Suspect]
     Indication: HYPERTENSION
     Dosage: 1 DF(160MG), DAILY
     Route: 048
     Dates: start: 2010, end: 201306
  2. DIOVAN [Suspect]
     Dosage: UNK UKN, UNK
     Dates: start: 201306

REACTIONS (1)
  - Hip fracture [Recovered/Resolved]
